FAERS Safety Report 24773561 (Version 2)
Quarter: 2024Q4

REPORT INFORMATION
  Report Type: Spontaneous
  Country: US (occurrence: US)
  Receive Date: 20241225
  Receipt Date: 20241225
  Transmission Date: 20250114
  Serious: Yes (Death, Other)
  Sender: AMGEN
  Company Number: US-AMGEN-USASP2024249330

PATIENT
  Age: 63 Year
  Sex: Male

DRUGS (2)
  1. PREDNISONE [Suspect]
     Active Substance: PREDNISONE
     Indication: Metastases to meninges
     Dosage: 1 MILLIGRAM/KILOGRAM
     Route: 048
  2. METHYLPREDNISOLONE [Concomitant]
     Active Substance: METHYLPREDNISOLONE
     Indication: Metastases to meninges
     Dosage: UNK (FIVE-DAY COURSE)
     Route: 040

REACTIONS (5)
  - Death [Fatal]
  - Glioblastoma [Unknown]
  - Metastases to meninges [Unknown]
  - Drug ineffective for unapproved indication [Unknown]
  - Off label use [Unknown]
